FAERS Safety Report 8498709-6 (Version None)
Quarter: 2012Q3

REPORT INFORMATION
  Report Type: 
  Country: None (occurrence: None)
  Receive Date: 20120709
  Receipt Date: 20120703
  Transmission Date: 20120928
  Serious: No
  Sender: FDA-Public Use
  Company Number: US-AMGEN-USASP2012037711

PATIENT
  Age: 43 Year
  Sex: Female

DRUGS (1)
  1. ENBREL [Suspect]
     Indication: RHEUMATOID ARTHRITIS
     Dosage: 50 MG, QWK
     Dates: start: 20120524, end: 20120628

REACTIONS (4)
  - INJECTION SITE SWELLING [None]
  - HYPERSENSITIVITY [None]
  - SKIN DISCOLOURATION [None]
  - INJECTION SITE ERYTHEMA [None]
